FAERS Safety Report 6296761-X (Version None)
Quarter: 2009Q3

REPORT INFORMATION
  Report Type: 
  Country: None (occurrence: None)
  Receive Date: 20090804
  Receipt Date: 20090310
  Transmission Date: 20100115
  Serious: Yes (Hospitalization)
  Sender: FDA-Public Use
  Company Number: US-BRISTOL-MYERS SQUIBB COMPANY-14538466

PATIENT
  Age: 54 Year
  Sex: Male
  Weight: 77 kg

DRUGS (3)
  1. TEQUIN [Suspect]
     Indication: PNEUMONIA ASPIRATION
     Dosage: TAKEN FROM 2000 OR 2002
  2. OMNIPEN [Suspect]
     Indication: PNEUMONIA ASPIRATION
     Dosage: REDUCED PLAVIX TO 75MG EVERY OTHER DAY
  3. ELMIRON [Concomitant]

REACTIONS (2)
  - RASH [None]
  - URTICARIA [None]
